FAERS Safety Report 13390872 (Version 1)
Quarter: 2017Q1

REPORT INFORMATION
  Report Type: Spontaneous
  Country: US (occurrence: US)
  Receive Date: 20170331
  Receipt Date: 20170331
  Transmission Date: 20170429
  Serious: Yes (Disabling, Other)
  Sender: FDA-Public Use
  Company Number: None

PATIENT
  Age: 63 Year
  Weight: 71.1 kg

DRUGS (10)
  1. JANUMET [Concomitant]
     Active Substance: METFORMIN HYDROCHLORIDE\SITAGLIPTIN PHOSPHATE
  2. LEVOTIROXINE [Concomitant]
     Active Substance: LEVOTHYROXINE
  3. VITAMIN E [Concomitant]
     Active Substance: .ALPHA.-TOCOPHEROL
  4. CHLORHEXIDINE GLUCONATE 0.12% [Suspect]
     Active Substance: CHLORHEXIDINE GLUCONATE
     Indication: PERIODONTITIS
     Dosage: ?          QUANTITY:1 FILL CAP ^LINE^;?
     Route: 048
     Dates: start: 20170309, end: 20170312
  5. VITAMIN B12 [Concomitant]
     Active Substance: CYANOCOBALAMIN
  6. ATORVASTATIN [Concomitant]
     Active Substance: ATORVASTATIN
  7. XANTAC [Concomitant]
  8. SUCRALFATE. [Concomitant]
     Active Substance: SUCRALFATE
  9. PAROXETINE. [Concomitant]
     Active Substance: PAROXETINE
  10. PANTHOPRAZOLE [Concomitant]

REACTIONS (6)
  - Oesophagitis [None]
  - Oral discomfort [None]
  - Eye irritation [None]
  - Sneezing [None]
  - Nasal inflammation [None]
  - Throat irritation [None]

NARRATIVE: CASE EVENT DATE: 20170309
